FAERS Safety Report 4680579-5 (Version None)
Quarter: 2005Q2

REPORT INFORMATION
  Report Type: 
  Country: None (occurrence: None)
  Receive Date: 20050531
  Receipt Date: 20050202
  Transmission Date: 20051028
  Serious: No
  Sender: FDA-Public Use
  Company Number: WAES 0501USA00746

PATIENT
  Age: 63 Year
  Sex: Female
  Weight: 58.9676 kg

DRUGS (3)
  1. ZETIA [Suspect]
     Indication: HYPERCHOLESTEROLAEMIA
     Dosage: 10 MG/DAILY/PO
     Route: 048
     Dates: start: 20041129, end: 20041229
  2. HYDRODIURIL [Concomitant]
  3. NORVASC [Concomitant]

REACTIONS (4)
  - ABDOMINAL DISCOMFORT [None]
  - BURNING SENSATION [None]
  - HYPERSENSITIVITY [None]
  - PAIN [None]
